FAERS Safety Report 7163783-6 (Version None)
Quarter: 2010Q4

REPORT INFORMATION
  Report Type: 
  Country: None (occurrence: None)
  Receive Date: 20101215
  Receipt Date: 20101130
  Transmission Date: 20110411
  Serious: Yes (Other)
  Sender: FDA-Public Use
  Company Number: CA-GENENTECH-310846

PATIENT
  Sex: Female

DRUGS (1)
  1. XOLAIR [Suspect]
     Indication: ASTHMA
     Dosage: 300 MG, 2/WEEK
     Route: 058
     Dates: start: 20090820

REACTIONS (3)
  - ABDOMINAL PAIN [None]
  - APPLICATION SITE HAEMATOMA [None]
  - CHOLECYSTECTOMY [None]
